FAERS Safety Report 5109802-X (Version None)
Quarter: 2006Q3

REPORT INFORMATION
  Report Type: 
  Country: None (occurrence: None)
  Receive Date: 20060914
  Receipt Date: 20060905
  Transmission Date: 20061208
  Serious: Yes (Hospitalization, Other)
  Sender: FDA-Public Use
  Company Number: HQWYE410307SEP06

PATIENT
  Age: 68 Year
  Sex: Female

DRUGS (3)
  1. ADVIL [Suspect]
     Dosage: SEE IMAGE
     Route: 048
  2. CHILDREN'S ADVIL [Suspect]
     Indication: CYSTITIS
     Dosage: ORAL
     Route: 048
  3. CHILDREN'S ADVIL [Suspect]
     Indication: INFLUENZA LIKE ILLNESS
     Dosage: ORAL
     Route: 048

REACTIONS (11)
  - CHILLS [None]
  - HEADACHE [None]
  - HYPOTENSION [None]
  - MALAISE [None]
  - NAUSEA [None]
  - NEUTROPHIL COUNT INCREASED [None]
  - PYREXIA [None]
  - SOMNOLENCE [None]
  - VOMITING [None]
  - WHITE BLOOD CELL COUNT INCREASED [None]
  - WHITE BLOOD CELLS URINE POSITIVE [None]
